FAERS Safety Report 5320991-4 (Version None)
Quarter: 2007Q2

REPORT INFORMATION
  Report Type: 
  Country: None (occurrence: None)
  Receive Date: 20070510
  Receipt Date: 20070501
  Transmission Date: 20071010
  Serious: Yes (Other)
  Sender: FDA-Public Use
  Company Number: PHEH2007US06681

PATIENT
  Sex: Female

DRUGS (1)
  1. ZELNORM [Suspect]
     Indication: IRRITABLE BOWEL SYNDROME
     Dosage: UNK, UNK
     Dates: start: 20020101

REACTIONS (7)
  - DIZZINESS [None]
  - FIBROMUSCULAR DYSPLASIA [None]
  - HEART RATE ABNORMAL [None]
  - HYPOAESTHESIA [None]
  - LOSS OF CONSCIOUSNESS [None]
  - NERVOUS SYSTEM DISORDER [None]
  - SPEECH DISORDER [None]
